FAERS Safety Report 18246977 (Version 2)
Quarter: 2020Q3

REPORT INFORMATION
  Report Type: Spontaneous
  Country: IT (occurrence: IT)
  Receive Date: 20200909
  Receipt Date: 20200914
  Transmission Date: 20201103
  Serious: Yes (Other)
  Sender: FDA-Public Use
  Company Number: IT-ACCORD-199767

PATIENT
  Age: 10 Year
  Sex: Female
  Weight: 23 kg

DRUGS (20)
  1. KETAMINE [Concomitant]
     Active Substance: KETAMINE
     Indication: SEDATION
     Dosage: 3.5 MG/KG DAILY
     Route: 065
  2. ALPRAZOLAM. [Suspect]
     Active Substance: ALPRAZOLAM
     Indication: DEPRESSION
     Dosage: .01 MG/KG DAILY
     Route: 065
  3. IBUPROFEN. [Suspect]
     Active Substance: IBUPROFEN
     Indication: PAIN
     Route: 065
  4. CETIRIZINE [Concomitant]
     Active Substance: CETIRIZINE HYDROCHLORIDE
     Indication: PRURITUS
     Dosage: 1 MG/KG DAILY
     Route: 065
  5. ARIPIPRAZOLE. [Suspect]
     Active Substance: ARIPIPRAZOLE
     Indication: SLEEP DISORDER
     Dosage: .3 MG/KG DAILY
     Route: 065
  6. ALPRAZOLAM. [Suspect]
     Active Substance: ALPRAZOLAM
     Indication: SLEEP DISORDER
     Dosage: .01 MG/KG DAILY
     Route: 065
  7. MELATONIN [Suspect]
     Active Substance: MELATONIN
     Indication: SLEEP DISORDER
     Dosage: .05 MG/KG DAILY;
     Route: 065
  8. TRAZODONE [Concomitant]
     Active Substance: TRAZODONE HYDROCHLORIDE
     Indication: SLEEP DISORDER
     Dosage: 1 MG/KG DAILY
     Route: 065
  9. NIAPRAZINE [Suspect]
     Active Substance: NIAPRAZINE
     Indication: SLEEP DISORDER
     Dosage: 1 MG/KG DAILY
     Route: 065
  10. GABAPENTIN. [Suspect]
     Active Substance: GABAPENTIN
     Indication: PAIN
     Dosage: 25 MG/KG DAILY
     Route: 065
  11. ALPRAZOLAM. [Suspect]
     Active Substance: ALPRAZOLAM
     Indication: DEPRESSION
     Route: 065
  12. METAMIZOLE SODIUM [Concomitant]
     Active Substance: METAMIZOLE SODIUM
     Indication: PAIN
     Dosage: 20 MG/KG DAILY;
     Route: 065
  13. PROPOFOL. [Concomitant]
     Active Substance: PROPOFOL
     Indication: SEDATION
     Dosage: 3 TIMES A WEEK
     Route: 065
  14. CHLORPHENAMINE/CHLORPHENAMINE MALEATE/CHLORPHENAMINE RESINATE/CHLORPHENAMINE TANNATE [Concomitant]
     Active Substance: CHLORPHENIRAMINE
     Indication: PRURITUS
     Dosage: .2 MG/KG DAILY;
     Route: 065
  15. DEXMEDETOMIDINE/DEXMEDETOMIDINE HYDROCHLORIDE [Suspect]
     Active Substance: DEXMEDETOMIDINE HYDROCHLORIDE
     Indication: SLEEP DISORDER
     Dosage: AT A DOSE OF 3MICROG/KG/DAY (0.7 ML OF THE IV FORMULATION AT THECONCENTRATION OF 100 MICROG/ML),...
     Route: 050
  16. DIAZEPAM. [Suspect]
     Active Substance: DIAZEPAM
     Indication: SLEEP DISORDER
     Dosage: .1 MG/KG DAILY
     Route: 065
  17. CHLORPHENAMINE/CHLORPHENAMINE MALEATE/CHLORPHENAMINE RESINATE/CHLORPHENAMINE TANNATE [Suspect]
     Active Substance: CHLORPHENIRAMINE
     Indication: PRURITUS
     Dosage: 0.2 MG/KG (PER DAY)
  18. TRAMADOL. [Concomitant]
     Active Substance: TRAMADOL
     Indication: PAIN
     Dosage: 6 MG/KG DAILY;
     Route: 065
  19. PARACETAMOL [Suspect]
     Active Substance: ACETAMINOPHEN
     Indication: PAIN
     Route: 065
  20. ARIPIPRAZOLE. [Suspect]
     Active Substance: ARIPIPRAZOLE
     Indication: DEPRESSION

REACTIONS (8)
  - Paradoxical drug reaction [Unknown]
  - Agitation [Unknown]
  - Quality of life decreased [Unknown]
  - Confusional arousal [Unknown]
  - Irritability [Unknown]
  - Fatigue [Unknown]
  - Drug ineffective [Unknown]
  - Sleep disorder [Unknown]
